FAERS Safety Report 4931448-4 (Version None)
Quarter: 2006Q1

REPORT INFORMATION
  Report Type: 
  Country: None (occurrence: None)
  Receive Date: 20060228
  Receipt Date: 20060203
  Transmission Date: 20060701
  Serious: Yes (Other)
  Sender: FDA-Public Use
  Company Number: US200602001061

PATIENT
  Age: 79 Year
  Sex: Female
  Weight: 47.2 kg

DRUGS (2)
  1. FORTEO [Suspect]
     Indication: OSTEOPOROSIS
     Dates: start: 20040101
  2. FORTEO PEN (FORTEO PEN) PEN, DISPOSABLE [Concomitant]

REACTIONS (5)
  - DIARRHOEA [None]
  - GALLBLADDER DISORDER [None]
  - KIDNEY ENLARGEMENT [None]
  - RENAL DISORDER [None]
  - WEIGHT DECREASED [None]
